FAERS Safety Report 24838251 (Version 3)
Quarter: 2025Q1

REPORT INFORMATION
  Report Type: Spontaneous
  Country: US (occurrence: US)
  Receive Date: 20250113
  Receipt Date: 20250204
  Transmission Date: 20250408
  Serious: No
  Sender: PFIZER
  Company Number: US-PFIZER INC-202500005454

PATIENT
  Age: 77 Year
  Sex: Female
  Weight: 53.515 kg

DRUGS (1)
  1. NURTEC ODT [Suspect]
     Active Substance: RIMEGEPANT SULFATE
     Indication: Migraine
     Route: 048

REACTIONS (3)
  - Illness [Unknown]
  - Influenza [Recovered/Resolved]
  - Thinking abnormal [Unknown]
